FAERS Safety Report 7235330-1 (Version None)
Quarter: 2011Q1

REPORT INFORMATION
  Report Type: 
  Country: None (occurrence: None)
  Receive Date: 20110120
  Receipt Date: 20110112
  Transmission Date: 20110831
  Serious: Yes (Death, Hospitalization, Other)
  Sender: FDA-Public Use
  Company Number: JP-AMGEN-JPNCT2011002127

PATIENT

DRUGS (9)
  1. CALCIUM LEVOFOLINATE [Suspect]
     Indication: COLORECTAL CANCER
     Route: 041
     Dates: start: 20101019, end: 20101124
  2. HIRUDOID SOFT [Concomitant]
     Route: 062
  3. PANITUMUMAB [Suspect]
     Indication: COLORECTAL CANCER
     Dosage: 6 MG/KG, Q2WK
     Route: 041
     Dates: start: 20101019, end: 20101019
  4. OXALIPLATIN [Suspect]
     Indication: COLORECTAL CANCER
     Route: 041
     Dates: start: 20101019, end: 20101124
  5. FLUOROURACIL [Suspect]
     Route: 041
     Dates: start: 20101019, end: 20101124
  6. FLUOROURACIL [Suspect]
     Indication: COLORECTAL CANCER
     Route: 040
     Dates: start: 20101019, end: 20101124
  7. MINOMYCIN [Concomitant]
     Route: 048
  8. TERRA-CORTRIL OINTMENT [Concomitant]
     Route: 062
  9. PANITUMUMAB [Suspect]
     Dosage: 6 MG/KG, Q2WK
     Route: 041
     Dates: start: 20101110, end: 20101124

REACTIONS (5)
  - DERMATITIS ACNEIFORM [None]
  - DIARRHOEA [None]
  - INTERSTITIAL LUNG DISEASE [None]
  - DRY SKIN [None]
  - STOMATITIS [None]
